FAERS Safety Report 8760858 (Version 2)
Quarter: 2012Q4

REPORT INFORMATION
  Report Type: 
  Country: JP (occurrence: JP)
  Receive Date: 20120830
  Receipt Date: 20120907
  Transmission Date: 20130627
  Serious: Yes (Life-Threatening, Other)
  Sender: FDA-Public Use
  Company Number: JP-GENZYME-THYM-1003387

PATIENT
  Age: 45 Year
  Sex: Male
  Weight: 80 kg

DRUGS (113)
  1. THYMOGLOBULIN [Suspect]
     Indication: APLASTIC ANAEMIA
     Dosage: 3.5 mg/day, UNK
     Route: 065
     Dates: start: 20120730, end: 20120803
  2. CYCLOSPORIN [Concomitant]
     Indication: APLASTIC ANAEMIA
     Dosage: UNK
     Route: 065
     Dates: start: 20120803, end: 20120803
  3. CYCLOSPORIN [Concomitant]
     Dosage: UNK
     Dates: start: 20120802, end: 20120802
  4. CYCLOSPORIN [Concomitant]
     Dosage: UNK
     Route: 065
     Dates: start: 20120730, end: 20120730
  5. CYCLOSPORIN [Concomitant]
     Dosage: UNK
     Route: 065
     Dates: start: 20120806, end: 20120806
  6. CYCLOSPORIN [Concomitant]
     Dosage: UNK
     Dates: start: 20120813, end: 20120813
  7. CYCLOSPORIN [Concomitant]
     Dosage: UNK
     Route: 065
     Dates: start: 20120810, end: 20120810
  8. CYCLOSPORIN [Concomitant]
     Dosage: UNK
     Route: 065
     Dates: start: 20120820, end: 20120820
  9. CYCLOSPORIN [Concomitant]
     Dosage: UNK
     Route: 065
     Dates: start: 20120817, end: 20120817
  10. LANSOPRAZOLE [Concomitant]
     Indication: PRODUCT USED FOR UNKNOWN INDICATION
     Dosage: UNK
     Route: 065
     Dates: start: 20120802, end: 20120802
  11. LANSOPRAZOLE [Concomitant]
     Dosage: UNK
     Route: 065
     Dates: start: 20120809, end: 20120809
  12. LANSOPRAZOLE [Concomitant]
     Dosage: UNK
     Route: 065
     Dates: start: 20120821, end: 20120821
  13. LANSOPRAZOLE [Concomitant]
     Dosage: UNK
     Route: 065
     Dates: start: 20120817, end: 20120817
  14. LANSOPRAZOLE [Concomitant]
     Dosage: UNK
     Route: 065
     Dates: start: 20120816, end: 20120816
  15. SULFAMETHOPRIM [Concomitant]
     Indication: PRODUCT USED FOR UNKNOWN INDICATION
     Dosage: UNK
     Route: 065
     Dates: start: 20120802, end: 20120802
  16. SULFAMETHOPRIM [Concomitant]
     Indication: INFECTION PROPHYLAXIS
     Dosage: UNK
     Route: 065
     Dates: start: 20120802, end: 20120802
  17. SULFAMETHOPRIM [Concomitant]
     Dosage: UNK
     Route: 065
     Dates: start: 20120809, end: 20120809
  18. SULFAMETHOPRIM [Concomitant]
     Dosage: UNK
     Route: 065
     Dates: start: 20120816, end: 20120816
  19. VALACICLOVIR HYDROCHLORIDE [Concomitant]
     Indication: PRODUCT USED FOR UNKNOWN INDICATION
     Dosage: UNK
     Route: 065
     Dates: start: 20120802, end: 20120802
  20. VALACICLOVIR HYDROCHLORIDE [Concomitant]
     Dosage: UNK
     Route: 065
     Dates: start: 20120809, end: 20120809
  21. VALACICLOVIR HYDROCHLORIDE [Concomitant]
     Dosage: UNK
     Route: 065
     Dates: start: 20120817, end: 20120817
  22. VALACICLOVIR HYDROCHLORIDE [Concomitant]
     Dosage: UNK
     Route: 065
     Dates: start: 20120816, end: 20120816
  23. VALACICLOVIR HYDROCHLORIDE [Concomitant]
  24. POLAPREZINC [Concomitant]
     Indication: PRODUCT USED FOR UNKNOWN INDICATION
     Dosage: UNK
     Route: 065
     Dates: start: 20120802, end: 20120802
  25. ITRACONAZOLE [Concomitant]
     Indication: PRODUCT USED FOR UNKNOWN INDICATION
     Dosage: UNK
     Route: 065
     Dates: start: 20120802, end: 20120802
  26. ITRACONAZOLE [Concomitant]
     Indication: INFECTION PROPHYLAXIS
     Dosage: UNK
     Route: 065
     Dates: start: 20120802, end: 20120802
  27. ITRACONAZOLE [Concomitant]
     Dosage: UNK
     Route: 065
     Dates: start: 20120809, end: 20120809
  28. ITRACONAZOLE [Concomitant]
     Dosage: UNK
     Route: 065
     Dates: start: 20120816, end: 20120816
  29. ANTIBIOTICS-RESISTANT LACTIC ACID BACTERIAE [Concomitant]
     Indication: PRODUCT USED FOR UNKNOWN INDICATION
     Dosage: UNK
     Route: 065
     Dates: start: 20120802, end: 20120802
  30. ANTIBIOTICS-RESISTANT LACTIC ACID BACTERIAE [Concomitant]
     Dosage: UNK
     Route: 065
     Dates: start: 20120809, end: 20120809
  31. ANTIBIOTICS-RESISTANT LACTIC ACID BACTERIAE [Concomitant]
     Dosage: UNK
     Route: 065
     Dates: start: 20120816, end: 20120816
  32. AMPHOTERICIN B [Concomitant]
     Indication: PRODUCT USED FOR UNKNOWN INDICATION
     Dosage: UNK
     Route: 065
     Dates: start: 20120801, end: 20120801
  33. AMPHOTERICIN B [Concomitant]
     Dosage: UNK
     Route: 065
     Dates: start: 20120805, end: 20120805
  34. AMPHOTERICIN B [Concomitant]
     Dosage: UNK
     Route: 065
     Dates: start: 20120812, end: 20120812
  35. AMPHOTERICIN B [Concomitant]
     Dosage: UNK
     Route: 065
     Dates: start: 20120820, end: 20120820
  36. ACETAMINOPHEN [Concomitant]
     Indication: PAIN
     Dosage: UNK
     Route: 065
     Dates: start: 20120730, end: 20120730
  37. ACETAMINOPHEN [Concomitant]
     Dosage: UNK
     Route: 065
     Dates: start: 20120810, end: 20120814
  38. ACETAMINOPHEN [Concomitant]
     Dosage: UNK
     Route: 065
     Dates: start: 20120814, end: 20120814
  39. METHYLPREDNISOLONE SODIUM SUCCINATE [Concomitant]
     Indication: PRODUCT USED FOR UNKNOWN INDICATION
     Dosage: UNK
     Route: 065
     Dates: start: 20120803, end: 20120803
  40. METHYLPREDNISOLONE SODIUM SUCCINATE [Concomitant]
     Dosage: UNK
     Route: 065
     Dates: start: 20120731, end: 20120802
  41. METHYLPREDNISOLONE SODIUM SUCCINATE [Concomitant]
     Dosage: UNK
     Route: 065
     Dates: start: 20120730, end: 20120730
  42. METHYLPREDNISOLONE SODIUM SUCCINATE [Concomitant]
     Dosage: UNK
     Route: 065
     Dates: start: 20120806, end: 20120809
  43. METHYLPREDNISOLONE SODIUM SUCCINATE [Concomitant]
     Dosage: UNK
     Route: 065
     Dates: start: 20120804, end: 20120805
  44. METHYLPREDNISOLONE SODIUM SUCCINATE [Concomitant]
     Dosage: UNK
     Route: 065
     Dates: start: 20120810, end: 20120812
  45. METHYLPREDNISOLONE SODIUM SUCCINATE [Concomitant]
     Dosage: UNK
     Route: 065
  46. FILGRASTIM [Concomitant]
     Indication: PRODUCT USED FOR UNKNOWN INDICATION
     Dosage: UNK
     Route: 065
     Dates: start: 20120801, end: 20120803
  47. FILGRASTIM [Concomitant]
     Dosage: UNK
     Route: 065
     Dates: start: 20120729, end: 20120729
  48. FILGRASTIM [Concomitant]
     Dosage: UNK
     Route: 065
     Dates: start: 20120731, end: 20120731
  49. FILGRASTIM [Concomitant]
     Dosage: UNK
     Route: 065
     Dates: start: 20120730, end: 20120730
  50. FILGRASTIM [Concomitant]
     Dosage: UNK
     Route: 065
     Dates: start: 20120804, end: 20120809
  51. FILGRASTIM [Concomitant]
     Dosage: UNK
     Route: 065
     Dates: start: 20120810, end: 20120815
  52. FILGRASTIM [Concomitant]
     Dosage: UNK
     Route: 065
     Dates: start: 20120821, end: 20120821
  53. FILGRASTIM [Concomitant]
     Dosage: UNK
     Route: 065
     Dates: start: 20120816, end: 20120819
  54. FILGRASTIM [Concomitant]
     Dosage: UNK
     Route: 065
     Dates: start: 20120820, end: 20120820
  55. TAZOCILLINE [Concomitant]
     Indication: PRODUCT USED FOR UNKNOWN INDICATION
     Dosage: UNK
     Route: 065
     Dates: start: 20120729, end: 20120729
  56. TAZOCILLINE [Concomitant]
     Dosage: UNK
     Route: 065
     Dates: start: 20120731, end: 20120803
  57. TAZOCILLINE [Concomitant]
     Dosage: UNK
     Route: 065
     Dates: start: 20120729, end: 20120803
  58. TAZOCILLINE [Concomitant]
     Dosage: UNK
     Route: 065
     Dates: start: 20120730, end: 20120730
  59. TAZOCILLINE [Concomitant]
     Dosage: UNK
     Route: 065
     Dates: start: 20120807, end: 20120809
  60. TAZOCILLINE [Concomitant]
     Dosage: UNK
     Route: 065
     Dates: start: 20120804, end: 20120809
  61. TAZOCILLINE [Concomitant]
     Dosage: UNK
     Route: 065
     Dates: start: 20120806, end: 20120806
  62. TAZOCILLINE [Concomitant]
     Dosage: UNK
     Route: 065
     Dates: start: 20120804, end: 20120805
  63. TAZOCILLINE [Concomitant]
     Dosage: UNK
     Route: 065
     Dates: start: 20120810, end: 20120812
  64. FUROSEMIDE [Concomitant]
     Indication: PRODUCT USED FOR UNKNOWN INDICATION
     Dosage: UNK
     Route: 065
     Dates: start: 20120802, end: 20120802
  65. FUROSEMIDE [Concomitant]
     Dosage: UNK
     Route: 065
     Dates: start: 20120816, end: 20120819
  66. HYDROCORTISONE SODIUM SUCCINATE [Concomitant]
     Indication: PRODUCT USED FOR UNKNOWN INDICATION
     Dosage: UNK
     Route: 065
     Dates: start: 20120730, end: 20120730
  67. HYDROCORTISONE SODIUM SUCCINATE [Concomitant]
     Dosage: UNK
     Route: 065
     Dates: start: 20120729, end: 20120729
  68. HYDROCORTISONE SODIUM SUCCINATE [Concomitant]
     Dosage: UNK
     Route: 065
     Dates: start: 20120815, end: 20120815
  69. HYDROCORTISONE SODIUM SUCCINATE [Concomitant]
     Dosage: UNK
     Route: 065
     Dates: start: 20120813, end: 20120813
  70. HYDROCORTISONE SODIUM SUCCINATE [Concomitant]
     Dosage: UNK
     Route: 065
     Dates: start: 20120816, end: 20120816
  71. HYDROCORTISONE SODIUM SUCCINATE [Concomitant]
     Dosage: UNK
     Route: 065
     Dates: start: 20120817, end: 20120817
  72. OLMESARTAN MEDOXOMIL [Concomitant]
     Indication: PRODUCT USED FOR UNKNOWN INDICATION
     Dosage: UNK
     Route: 065
     Dates: start: 20120809, end: 20120809
  73. OLMESARTAN MEDOXOMIL [Concomitant]
     Dosage: UNK
     Route: 065
     Dates: start: 20120806, end: 20120806
  74. OLMESARTAN MEDOXOMIL [Concomitant]
     Dosage: UNK
     Route: 065
     Dates: start: 20120816, end: 20120816
  75. OLMESARTAN MEDOXOMIL [Concomitant]
     Dosage: UNK
     Route: 065
     Dates: start: 20120817, end: 20120817
  76. POVIDONE IODINE [Concomitant]
     Indication: PRODUCT USED FOR UNKNOWN INDICATION
     Dosage: UNK
     Route: 065
     Dates: start: 20120814, end: 20120814
  77. POVIDONE IODINE [Concomitant]
     Dosage: UNK
     Route: 065
     Dates: start: 20120805, end: 20120805
  78. TRIBENOSIDE LIDOCAINE [Concomitant]
     Indication: PROPHYLAXIS
     Dosage: UNK
     Route: 065
     Dates: start: 20120814, end: 20120814
  79. TRIBENOSIDE LIDOCAINE [Concomitant]
     Dosage: UNK
     Route: 065
     Dates: start: 20120816, end: 20120816
  80. PREDNISOLONE ACETATE [Concomitant]
     Indication: PRODUCT USED FOR UNKNOWN INDICATION
     Dosage: UNK
     Route: 065
     Dates: start: 20120813, end: 20120813
  81. PREDNISOLONE ACETATE [Concomitant]
     Dosage: UNK
     Route: 065
     Dates: start: 20120820, end: 20120820
  82. LEVOFLOXACIN [Concomitant]
     Indication: ANTI-INFECTIVE THERAPY
     Dosage: UNK
     Route: 065
     Dates: start: 20120813, end: 20120813
  83. PAROXETINE HYDROCHLORIDE [Concomitant]
     Indication: PRODUCT USED FOR UNKNOWN INDICATION
     Dosage: UNK
     Route: 065
     Dates: start: 20120811, end: 20120811
  84. PAROXETINE HYDROCHLORIDE [Concomitant]
     Dosage: UNK
     Route: 065
     Dates: start: 20120816, end: 20120816
  85. ALUMINIUM HYDROXIDE GEL_MAGNESIUM HYDROXIDE [Concomitant]
     Indication: PRODUCT USED FOR UNKNOWN INDICATION
     Dosage: UNK
     Route: 065
     Dates: start: 20120810, end: 20120810
  86. CEFEPIME HYDROCHLORIDE [Concomitant]
     Indication: PRODUCT USED FOR UNKNOWN INDICATION
     Dosage: UNK
     Route: 065
     Dates: start: 20120815, end: 20120815
  87. CEFEPIME HYDROCHLORIDE [Concomitant]
     Dosage: UNK
     Route: 065
     Dates: start: 20120814, end: 20120814
  88. FLURBIPROFEN AXETIL [Concomitant]
     Indication: HYPOPHAGIA
     Dosage: UNK
     Route: 065
     Dates: start: 20120815, end: 20120815
  89. FLURBIPROFEN AXETIL [Concomitant]
     Indication: DRUG INEFFECTIVE
  90. DORIPENEM HYDRATE [Concomitant]
     Indication: PRODUCT USED FOR UNKNOWN INDICATION
     Dosage: UNK
     Route: 065
     Dates: start: 20120815, end: 20120815
  91. DORIPENEM HYDRATE [Concomitant]
     Dosage: UNK
     Route: 065
     Dates: start: 20120816, end: 20120820
  92. DORIPENEM HYDRATE [Concomitant]
     Dosage: UNK
     Route: 065
     Dates: start: 20120820, end: 20120820
  93. DORIPENEM HYDRATE [Concomitant]
     Dosage: UNK
     Route: 065
     Dates: start: 20120816, end: 20120819
  94. DORIPENEM HYDRATE [Concomitant]
     Dosage: UNK
     Route: 065
     Dates: start: 20120821, end: 20120821
  95. ACETATED RINGER^S SOLUTION (WITH GLUCOSE) [Concomitant]
     Indication: PRODUCT USED FOR UNKNOWN INDICATION
     Dosage: UNK
     Route: 065
     Dates: start: 20120815, end: 20120815
  96. ACETATED RINGER^S SOLUTION (WITH GLUCOSE) [Concomitant]
     Dosage: UNK
     Route: 065
     Dates: start: 20120817, end: 20120817
  97. ACETATED RINGER^S SOLUTION (WITH GLUCOSE) [Concomitant]
     Dosage: UNK
     Dates: start: 20120816, end: 20120816
  98. ACETATED RINGER^S SOLUTION (WITH GLUCOSE) [Concomitant]
     Dosage: UNK
     Route: 065
     Dates: start: 20120820, end: 20120820
  99. AMLODIPINE BESILATE [Concomitant]
     Indication: PRODUCT USED FOR UNKNOWN INDICATION
     Dosage: UNK
     Route: 065
     Dates: start: 20120821, end: 20120821
  100. SCOPOLAMINE BUTYLBROMIDE [Concomitant]
     Indication: PRODUCT USED FOR UNKNOWN INDICATION
     Dosage: UNK
     Route: 065
     Dates: start: 20120821, end: 20120821
  101. KETOPROFEN [Concomitant]
     Indication: PRODUCT USED FOR UNKNOWN INDICATION
     Dosage: UNK
     Route: 065
     Dates: start: 20120820, end: 20120820
  102. KETOPROFEN [Concomitant]
     Indication: BACK PAIN
     Dosage: UNK
     Route: 065
     Dates: start: 20120816, end: 20120816
  103. LORAZEPAM [Concomitant]
     Indication: ANXIETY
     Dosage: UNK
     Route: 065
     Dates: start: 20120816, end: 20120816
  104. CARBAZOCHROME SODIUM SULFONATE [Concomitant]
     Indication: PRODUCT USED FOR UNKNOWN INDICATION
     Dosage: UNK
     Route: 065
     Dates: start: 20120821, end: 20120821
  105. CARBAZOCHROME SODIUM SULFONATE [Concomitant]
     Dosage: UNK
     Route: 065
     Dates: start: 20120820, end: 20120820
  106. CARBAZOCHROME SODIUM SULFONATE [Concomitant]
     Dosage: UNK
     Route: 065
     Dates: start: 20120819, end: 20120819
  107. TRANEXAMIC ACID [Concomitant]
     Indication: PRODUCT USED FOR UNKNOWN INDICATION
     Dosage: UNK
     Route: 065
     Dates: start: 20120821, end: 20120821
  108. TRANEXAMIC ACID [Concomitant]
     Dosage: UNK
     Route: 065
     Dates: start: 20120819, end: 20120819
  109. CHLORPHENIRAMINE MALEATE [Concomitant]
     Indication: PRODUCT USED FOR UNKNOWN INDICATION
     Dosage: UNK
     Route: 065
     Dates: start: 20120819, end: 20120819
  110. CHLORPHENIRAMINE MALEATE [Concomitant]
     Dosage: UNK
     Route: 065
     Dates: start: 20120818, end: 20120818
  111. MIXED AMINO ACID CARBOHYDRATE ELECTROCYTE VITAMIN COMBINE [Concomitant]
     Indication: PRODUCT USED FOR UNKNOWN INDICATION
     Dosage: UNK
     Route: 065
     Dates: start: 20120818, end: 20120820
  112. MAINTENANCE MEDIUM [Concomitant]
     Indication: PRODUCT USED FOR UNKNOWN INDICATION
     Dosage: UNK
     Route: 065
     Dates: start: 20120816, end: 20120816
  113. FREEZE DRIED POLYETHYLENE GLYCOL TREATED HUMAN NORMAL IMM [Concomitant]
     Indication: PRODUCT USED FOR UNKNOWN INDICATION
     Dosage: UNK
     Route: 065
     Dates: start: 20120816, end: 20120816

REACTIONS (5)
  - Cystitis haemorrhagic [Not Recovered/Not Resolved]
  - Hydronephrosis [Not Recovered/Not Resolved]
  - Renal failure [Not Recovered/Not Resolved]
  - Haematuria [Unknown]
  - Post transplant lymphoproliferative disorder [Unknown]
